FAERS Safety Report 4288127-9 (Version None)
Quarter: 2004Q1

REPORT INFORMATION
  Report Type: 
  Country: None (occurrence: None)
  Receive Date: 20040202
  Receipt Date: 20030106
  Transmission Date: 20041129
  Serious: Yes (Hospitalization)
  Sender: FDA-Public Use
  Company Number: 136186USA

PATIENT
  Age: 68 Year
  Sex: Male

DRUGS (4)
  1. COPAXONE [Suspect]
     Indication: MULTIPLE SCLEROSIS
     Dates: start: 20020924, end: 20021122
  2. BETASERON [Suspect]
     Indication: MULTIPLE SCLEROSIS
     Dosage: 8 ML DAILY SUBCUTANEOUS
     Route: 058
     Dates: start: 20020924, end: 20021122
  3. PNEUMONIA VACCINE [Concomitant]
  4. INFLUENZA VACCINE ^DUPHAR^ [Concomitant]

REACTIONS (3)
  - CORONARY ARTERY DISEASE [None]
  - DYSPNOEA [None]
  - RESTLESSNESS [None]
